FAERS Safety Report 5887829-8 (Version None)
Quarter: 2008Q3

REPORT INFORMATION
  Report Type: 
  Country: None (occurrence: None)
  Receive Date: 20080918
  Receipt Date: 20080916
  Transmission Date: 20090109
  Serious: Yes (Hospitalization)
  Sender: FDA-Public Use
  Company Number: US-BRISTOL-MYERS SQUIBB COMPANY-14266779

PATIENT
  Age: 70 Year
  Sex: Female
  Weight: 65 kg

DRUGS (12)
  1. IXABEPILONE [Suspect]
     Indication: BREAST CANCER METASTATIC
     Dosage: 40 MG/M2 EVERY 21 DAYS
     Route: 042
     Dates: start: 20080707, end: 20080707
  2. GLYBURIDE [Concomitant]
     Indication: DIABETES MELLITUS
  3. MULTI-VITAMIN [Concomitant]
     Indication: NUTRITIONAL SUPPORT
  4. NEURONTIN [Concomitant]
     Indication: NEUROPATHY PERIPHERAL
     Route: 048
     Dates: start: 20080114
  5. DIGOXIN [Concomitant]
     Indication: CARDIAC FAILURE CONGESTIVE
     Dates: start: 20080304
  6. LASIX [Concomitant]
     Indication: CARDIAC FAILURE CONGESTIVE
     Dates: start: 20080304
  7. SIMVASTATIN [Concomitant]
     Indication: HYPERLIPIDAEMIA
  8. DIOVAN [Concomitant]
     Indication: CARDIAC FAILURE CONGESTIVE
     Dates: start: 20080304
  9. ADVAIR DISKUS 100/50 [Concomitant]
     Indication: BRONCHITIS
     Dates: start: 20080304
  10. MAGNESIUM SULFATE [Concomitant]
     Indication: CARDIAC FAILURE CONGESTIVE
     Dates: start: 20080304
  11. ISOSORBIDE MONONITRATE [Concomitant]
     Indication: CARDIAC FAILURE CONGESTIVE
     Dates: start: 20080304
  12. DILTIAZEM HCL [Concomitant]
     Indication: CARDIAC FAILURE CONGESTIVE
     Dates: start: 20080304

REACTIONS (3)
  - CARDIAC FAILURE CONGESTIVE [None]
  - FEBRILE NEUTROPENIA [None]
  - SEPSIS [None]
